FAERS Safety Report 5019560-5 (Version None)
Quarter: 2006Q2

REPORT INFORMATION
  Report Type: 
  Country: None (occurrence: None)
  Receive Date: 20060601
  Receipt Date: 20060517
  Transmission Date: 20061013
  Serious: Yes (Hospitalization)
  Sender: FDA-Public Use
  Company Number: 2006-01238

PATIENT
  Age: 54 Year
  Sex: Female
  Weight: 55.9 kg

DRUGS (17)
  1. VELCADE [Suspect]
     Indication: AMYLOIDOSIS
     Dosage: 1.30 MG/M2, IV BOLUS
     Route: 040
     Dates: start: 20050110, end: 20050224
  2. MELPHALAN [Concomitant]
  3. PREDNISONE [Concomitant]
  4. POTASSIUM CHLORIDE [Concomitant]
  5. LASIX [Concomitant]
  6. ZAROXOLYN [Concomitant]
  7. LEVOXYL (LEVOTHROXINE SODIUM) [Concomitant]
  8. TOPROL-XL [Concomitant]
  9. ADVAIR DISKUS 100/50 [Concomitant]
  10. TEMAZEPAM [Concomitant]
  11. MIRAPEX [Concomitant]
  12. GLIMEPIRIDE [Concomitant]
  13. PROTONIX [Concomitant]
  14. DECADRON [Concomitant]
  15. ANZEMET [Concomitant]
  16. LEVAQUIN [Concomitant]
  17. OXYGEN (OXYGEN) [Concomitant]

REACTIONS (11)
  - BLOOD PRESSURE DIASTOLIC DECREASED [None]
  - DILATATION ATRIAL [None]
  - FLUID OVERLOAD [None]
  - HAEMATOCRIT DECREASED [None]
  - HAEMOGLOBIN DECREASED [None]
  - HEADACHE [None]
  - PAIN [None]
  - PNEUMONIA [None]
  - VENTRICULAR DYSFUNCTION [None]
  - VENTRICULAR HYPERTROPHY [None]
  - WHITE BLOOD CELL COUNT DECREASED [None]
